FAERS Safety Report 7789824-0 (Version None)
Quarter: 2011Q3

REPORT INFORMATION
  Report Type: 
  Country: None (occurrence: None)
  Receive Date: 20110930
  Receipt Date: 20110318
  Transmission Date: 20111222
  Serious: Yes (Other)
  Sender: FDA-Public Use
  Company Number: US-ASTRAZENECA-2011SE15473

PATIENT

DRUGS (2)
  1. AROMASIN [Suspect]
     Route: 065
  2. ARIMIDEX [Suspect]
     Route: 048

REACTIONS (3)
  - COUGH [None]
  - DYSPNOEA [None]
  - BRONCHITIS [None]
